FAERS Safety Report 8799224 (Version 1)
Quarter: 2012Q4

REPORT INFORMATION
  Report Type: Spontaneous
  Country: TN (occurrence: None)
  Receive Date: 20120914
  Receipt Date: 20120914
  Transmission Date: 20130627
  Serious: Yes (Life-Threatening, Hospitalization)
  Sender: FDA-Public Use
  Company Number: PD 170

PATIENT
  Age: 36 Year
  Sex: Male

DRUGS (2)
  1. RANITIDINE [Suspect]
     Indication: COLIC
     Dosage: Intravenous bolus
     Route: 042
  2. RANITIDINE [Suspect]
     Indication: EPIGASTRIC DISCOMFORT
     Dosage: Intravenous bolus
     Route: 042

REACTIONS (1)
  - Anaphylactic shock [None]
